FAERS Safety Report 19906668 (Version 1)
Quarter: 2021Q4

REPORT INFORMATION
  Report Type: Spontaneous
  Country: CN (occurrence: CN)
  Receive Date: 20211001
  Receipt Date: 20211001
  Transmission Date: 20220303
  Serious: Yes (Hospitalization, Other)
  Sender: FDA-Public Use
  Company Number: CN-PFIZER INC-202101259858

PATIENT
  Age: 66 Year
  Sex: Female
  Weight: 53.5 kg

DRUGS (1)
  1. SERTRALINE HYDROCHLORIDE [Suspect]
     Active Substance: SERTRALINE HYDROCHLORIDE
     Indication: Depression
     Dosage: 50 MG, 1X/DAY
     Route: 048
     Dates: start: 20200101, end: 20210921

REACTIONS (7)
  - Tardive dyskinesia [Recovering/Resolving]
  - Irritability [Unknown]
  - Palpitations [Unknown]
  - Chest discomfort [Unknown]
  - Dyskinesia [Unknown]
  - Tremor [Unknown]
  - Extraocular muscle disorder [Unknown]

NARRATIVE: CASE EVENT DATE: 20210906
